FAERS Safety Report 5960842-8 (Version None)
Quarter: 2008Q4

REPORT INFORMATION
  Report Type: 
  Country: None (occurrence: None)
  Receive Date: 20081112
  Receipt Date: 20080411
  Transmission Date: 20090506
  Serious: Yes (Hospitalization)
  Sender: FDA-Public Use
  Company Number: 2008S1000141

PATIENT
  Age: 55 Year
  Sex: Male
  Weight: 159 kg

DRUGS (35)
  1. CUBICIN [Suspect]
     Indication: OSTEOMYELITIS
     Dosage: 6 MG/KG; Q24H; IV
     Route: 042
     Dates: start: 20080402, end: 20080411
  2. MORPHINE [Concomitant]
  3. TYLENOL W/ CODEINE NO. 3 [Concomitant]
  4. PERCOCET [Concomitant]
  5. SENOKOT [Concomitant]
  6. BISACODYL [Concomitant]
  7. FEOSOL [Concomitant]
  8. PROCHLORPERAZINE [Concomitant]
  9. ZOLPIDEM [Concomitant]
  10. NALOXONE [Concomitant]
  11. DIPHENHYDRAMINE HCL [Concomitant]
  12. ACETAMINOPHEN [Concomitant]
  13. MILK OF MAGNESIA [Concomitant]
  14. MULTIVIAMINS [Concomitant]
  15. WARFARIN SODIUM [Concomitant]
  16. LOPRESSOR [Concomitant]
  17. LISINOPRIL [Concomitant]
  18. FENTANYL-100 [Concomitant]
  19. GABAPENTIN [Concomitant]
  20. HEPARIN [Concomitant]
  21. CALCIUM [Concomitant]
  22. KETOROLAC TROMETHAMINE [Concomitant]
  23. HYDROMORPHONE HYDROCHLORIDE [Concomitant]
  24. OXYCONTIN [Concomitant]
  25. METHOCARBAMOL [Concomitant]
  26. HYDROCORTISONE [Concomitant]
  27. SODIUM CHLORIDE COMPOUND INJECTION [Concomitant]
  28. VANCOMYCIN [Concomitant]
  29. SODIUM CHLORIDE [Concomitant]
  30. GENTAMICIN [Concomitant]
  31. POTASSIUM CHLORIDE [Concomitant]
  32. ASPIRIN [Concomitant]
  33. FISH OIL [Concomitant]
  34. FUROSEMIDE [Concomitant]
  35. DICLOFENAC [Concomitant]

REACTIONS (2)
  - RASH [None]
  - RENAL FAILURE [None]
